FAERS Safety Report 15051754 (Version 1)
Quarter: 2018Q2

REPORT INFORMATION
  Report Type: Spontaneous
  Country: DE (occurrence: DE)
  Receive Date: 20180622
  Receipt Date: 20180622
  Transmission Date: 20180711
  Serious: Yes (Other)
  Sender: FDA-Public Use
  Company Number: DE-TEVA-2018-DE-907036

PATIENT
  Age: 58 Year
  Sex: Female
  Weight: 45 kg

DRUGS (4)
  1. CIPROFLOXACIN. [Suspect]
     Active Substance: CIPROFLOXACIN
     Indication: CYSTITIS NONINFECTIVE
     Route: 048
     Dates: start: 20150124, end: 20150202
  2. CIPROFLOXACIN. [Suspect]
     Active Substance: CIPROFLOXACIN
     Route: 065
     Dates: start: 20151229, end: 20160107
  3. CIPROFLOXACIN. [Suspect]
     Active Substance: CIPROFLOXACIN
     Dates: start: 20170330
  4. CIPROFLOXACIN. [Suspect]
     Active Substance: CIPROFLOXACIN
     Route: 065
     Dates: start: 20170322, end: 20170331

REACTIONS (22)
  - Sensory disturbance [Unknown]
  - Diarrhoea [Recovered/Resolved]
  - Non-cardiac chest pain [Recovered/Resolved]
  - Hyperhidrosis [Unknown]
  - Balance disorder [Unknown]
  - Muscular weakness [Unknown]
  - Tendon pain [Unknown]
  - Asthenia [Unknown]
  - Throat tightness [Unknown]
  - Myalgia [Unknown]
  - Vision blurred [Unknown]
  - Back pain [Unknown]
  - Neck pain [Unknown]
  - Vomiting [Recovered/Resolved]
  - Fatigue [Unknown]
  - Coordination abnormal [Unknown]
  - Decreased appetite [Unknown]
  - Paraesthesia [Unknown]
  - Dizziness [Recovered/Resolved]
  - Arthralgia [Unknown]
  - Headache [Recovered/Resolved]
  - Dysaesthesia [Recovered/Resolved]

NARRATIVE: CASE EVENT DATE: 2015
